FAERS Safety Report 21668490 (Version 1)
Quarter: 2022Q4

REPORT INFORMATION
  Report Type: Spontaneous
  Country: CN (occurrence: CN)
  Receive Date: 20221201
  Receipt Date: 20221201
  Transmission Date: 20230113
  Serious: Yes (Hospitalization)
  Sender: FDA-Public Use
  Company Number: CN-Merck Healthcare KGaA-9367634

PATIENT
  Age: 56 Year
  Sex: Male
  Weight: 62 kg

DRUGS (11)
  1. ERBITUX [Suspect]
     Active Substance: CETUXIMAB
     Indication: Gastrointestinal carcinoma
     Dosage: 800 MG, UNKNOWN
     Route: 041
     Dates: start: 20221030, end: 20221030
  2. IRINOTECAN HYDROCHLORIDE [Suspect]
     Active Substance: IRINOTECAN HYDROCHLORIDE
     Indication: Gastrointestinal carcinoma
     Dosage: UNK UNK, DAILY
     Route: 041
     Dates: start: 20221030, end: 20221030
  3. FLUOROURACIL [Suspect]
     Active Substance: FLUOROURACIL
     Indication: Gastrointestinal carcinoma
     Dosage: UNK UNK, UNKNOWN
     Route: 042
     Dates: start: 20221030
  4. FLUOROURACIL [Suspect]
     Active Substance: FLUOROURACIL
     Dosage: UNK UNK, UNKNOWN
     Route: 042
     Dates: start: 20221030, end: 20221030
  5. LEUCOVORIN CALCIUM [Concomitant]
     Active Substance: LEUCOVORIN CALCIUM
     Indication: Gastrointestinal carcinoma
     Route: 041
     Dates: start: 20221030, end: 20221030
  6. DEXTROSE [Concomitant]
     Active Substance: DEXTROSE
     Indication: Medication dilution
     Route: 041
     Dates: start: 20221030, end: 20221030
  7. DEXTROSE [Concomitant]
     Active Substance: DEXTROSE
     Route: 042
     Dates: start: 20221030, end: 20221030
  8. DEXTROSE [Concomitant]
     Active Substance: DEXTROSE
     Route: 041
     Dates: start: 20221030, end: 20221030
  9. DEXTROSE [Concomitant]
     Active Substance: DEXTROSE
     Route: 042
     Dates: start: 20221030, end: 20221030
  10. SODIUM CHLORIDE [Concomitant]
     Active Substance: SODIUM CHLORIDE
     Indication: Medication dilution
     Route: 041
     Dates: start: 20221030, end: 20221030
  11. SODIUM CHLORIDE [Concomitant]
     Active Substance: SODIUM CHLORIDE
     Dosage: UNK
     Route: 041
     Dates: start: 20221030, end: 20221030

REACTIONS (1)
  - Myelosuppression [Recovering/Resolving]

NARRATIVE: CASE EVENT DATE: 20221109
